FAERS Safety Report 5281042-3 (Version None)
Quarter: 2007Q1

REPORT INFORMATION
  Report Type: 
  Country: None (occurrence: None)
  Receive Date: 20070323
  Receipt Date: 20070309
  Transmission Date: 20070707
  Serious: Yes (Death)
  Sender: FDA-Public Use
  Company Number: 2007-01393

PATIENT
  Age: 39 Year
  Sex: 0

DRUGS (3)
  1. DIAZEPAM [Suspect]
  2. TRAMADOL HCL [Suspect]
  3. OXYCODONE HYDROCHLORIDE/APAP UNKNOWN STRENGTH + FORMULATION (WATSON) ( [Suspect]

REACTIONS (1)
  - DEATH [None]
